FAERS Safety Report 21944817 (Version 1)
Quarter: 2023Q1

REPORT INFORMATION
  Report Type: Spontaneous
  Country: US (occurrence: None)
  Receive Date: 20230201
  Receipt Date: 20230201
  Transmission Date: 20230417
  Serious: No
  Sender: FDA-Public Use
  Company Number: None

PATIENT
  Sex: 0

DRUGS (2)
  1. ZAFIRLUKAST [Suspect]
     Active Substance: ZAFIRLUKAST
  2. FAMOTIDINE [Suspect]
     Active Substance: FAMOTIDINE

REACTIONS (2)
  - Product dosage form issue [None]
  - Product appearance confusion [None]

NARRATIVE: CASE EVENT DATE: 20230106
